FAERS Safety Report 5607734-1 (Version None)
Quarter: 2008Q1

REPORT INFORMATION
  Report Type: 
  Country: None (occurrence: None)
  Receive Date: 20080130
  Receipt Date: 20080118
  Transmission Date: 20080703
  Serious: Yes (Hospitalization)
  Sender: FDA-Public Use
  Company Number: DE-ELI_LILLY_AND_COMPANY-DE200801004394

PATIENT
  Age: 10 Year
  Sex: Male

DRUGS (1)
  1. HUMATROPE [Suspect]
     Dosage: UNK, UNKNOWN
     Route: 058
     Dates: start: 20071219, end: 20080101

REACTIONS (4)
  - HYPERSENSITIVITY [None]
  - MALAISE [None]
  - PNEUMONIA [None]
  - PYREXIA [None]
